FAERS Safety Report 17442689 (Version 1)
Quarter: 2020Q1

REPORT INFORMATION
  Report Type: Report from Study
  Country: None (occurrence: US)
  Receive Date: 20200220
  Receipt Date: 20200220
  Transmission Date: 20200409
  Serious: Yes (Hospitalization, Other)
  Sender: FDA-Public Use
  Company Number: US-ABBVIE-19K-163-2945937-00

PATIENT
  Sex: Female

DRUGS (1)
  1. HUMIRA [Suspect]
     Active Substance: ADALIMUMAB
     Indication: RHEUMATOID ARTHRITIS
     Route: 058

REACTIONS (11)
  - Skin atrophy [Unknown]
  - Cardiac failure congestive [Unknown]
  - Asthma [Unknown]
  - Hepatic cirrhosis [Unknown]
  - Skin fissures [Unknown]
  - Pruritus [Unknown]
  - Psoriasis [Unknown]
  - Musculoskeletal disorder [Unknown]
  - Skin mass [Unknown]
  - Memory impairment [Unknown]
  - Rheumatoid arthritis [Unknown]
